FAERS Safety Report 5860299-1 (Version None)
Quarter: 2008Q3

REPORT INFORMATION
  Report Type: 
  Country: None (occurrence: None)
  Receive Date: 20080827
  Receipt Date: 20070827
  Transmission Date: 20090109
  Serious: No
  Sender: FDA-Public Use
  Company Number: US-ABBOTT-07P-163-0414949-00

PATIENT
  Sex: Male
  Weight: 92 kg

DRUGS (7)
  1. NIASPAN [Suspect]
     Indication: LOW DENSITY LIPOPROTEIN INCREASED
     Dosage: COATED AT BEDTIME
     Route: 048
     Dates: start: 20070301
  2. NIASPAN [Suspect]
     Dosage: UNCOATED AT BEDTIME
     Route: 048
     Dates: start: 20060101, end: 20070301
  3. ISOSORBIDE [Concomitant]
     Indication: DRUG USE FOR UNKNOWN INDICATION
     Route: 048
  4. 325 COATED ASPIRIN [Concomitant]
     Indication: CARDIOVASCULAR EVENT PROPHYLAXIS
     Route: 048
  5. SIMVASTATIN [Concomitant]
     Indication: BLOOD CHOLESTEROL INCREASED
     Route: 048
  6. GAMSULSION [Concomitant]
     Indication: PROSTATIC DISORDER
     Route: 048
  7. M.V.I. [Concomitant]
     Indication: VITAMIN SUPPLEMENTATION
     Route: 048

REACTIONS (4)
  - FLUSHING [None]
  - FREQUENT BOWEL MOVEMENTS [None]
  - STOMACH DISCOMFORT [None]
  - WEIGHT INCREASED [None]
